FAERS Safety Report 7598284-4 (Version None)
Quarter: 2011Q3

REPORT INFORMATION
  Report Type: 
  Country: None (occurrence: None)
  Receive Date: 20110708
  Receipt Date: 20110701
  Transmission Date: 20111222
  Serious: Yes (Disabling, Other)
  Sender: FDA-Public Use
  Company Number: US-CEPHALON-2010005611

PATIENT
  Sex: Female
  Weight: 74 kg

DRUGS (3)
  1. DURAGESIC-100 [Concomitant]
  2. ACTIQ [Suspect]
     Indication: PAIN
     Route: 002
     Dates: start: 20000101, end: 20090101
  3. ACTIQ [Suspect]
     Indication: INTERVERTEBRAL DISC DEGENERATION

REACTIONS (3)
  - GINGIVAL EROSION [None]
  - ORAL SURGERY [None]
  - TOOTH DISORDER [None]
